FAERS Safety Report 7848187 (Version 7)
Quarter: 2013Q3

REPORT INFORMATION
  Report Type: Report from Study
  Country: US (occurrence: US)
  Receive Date: 20110309
  Receipt Date: 20130715
  Transmission Date: 20140515
  Serious: Yes (Hospitalization)
  Sender: FDA-Public Use
  Company Number: US-BRISTOL-MYERS SQUIBB COMPANY-15588924

PATIENT
  Age: 46 Year
  Sex: Male

DRUGS (3)
  1. NPH INSULIN [Suspect]
     Indication: TYPE 2 DIABETES MELLITUS
  2. PLACEBO [Suspect]
     Indication: TYPE 2 DIABETES MELLITUS
     Dates: end: 20110226
  3. LISINOPRIL [Suspect]

REACTIONS (1)
  - Pancreatitis [Recovered/Resolved]
